FAERS Safety Report 8409925-3 (Version None)
Quarter: 2012Q2

REPORT INFORMATION
  Report Type: 
  Country: None (occurrence: None)
  Receive Date: 20120605
  Receipt Date: 20120524
  Transmission Date: 20120825
  Serious: Yes (Other)
  Sender: FDA-Public Use
  Company Number: NL-BRISTOL-MYERS SQUIBB COMPANY-16418139

PATIENT
  Age: 65 Year
  Sex: Female

DRUGS (4)
  1. LEVOTHYROXINE SODIUM [Concomitant]
     Indication: HYPOTHYROIDISM
     Dosage: THYRAX TABLET 0.025MG
     Route: 048
     Dates: start: 20111128
  2. METOPROLOL SUCCINATE [Concomitant]
     Indication: TACHYCARDIA
     Dosage: METOPROLOL SUCCINATE SANDOZ RETARD TABS
     Route: 048
     Dates: start: 20081110
  3. IRBESARTAN AND HYDROCHLOROTHIAZIDE [Suspect]
     Dosage: 1 DF = 150/12.5 MG
     Route: 048
     Dates: start: 20090301, end: 20120223
  4. OMEPRAZOLE [Concomitant]
     Dosage: CAPS MSR 20MG
     Dates: start: 20090611

REACTIONS (1)
  - LUPUS-LIKE SYNDROME [None]
